FAERS Safety Report 8630796 (Version 3)
Quarter: 2012Q4

REPORT INFORMATION
  Report Type: 
  Country: GB (occurrence: GB)
  Receive Date: 20120622
  Receipt Date: 20120906
  Transmission Date: 20130627
  Serious: Yes (Hospitalization)
  Sender: FDA-Public Use
  Company Number: GB-JNJFOC-20120608254

PATIENT
  Sex: Male
  Weight: 75.5 kg

DRUGS (4)
  1. XARELTO [Suspect]
     Indication: THROMBOSIS PROPHYLAXIS
     Route: 048
  2. XARELTO [Suspect]
     Indication: HIP ARTHROPLASTY
     Route: 048
  3. WARFARIN [Concomitant]
  4. ENOXAPARIN [Concomitant]
     Dates: start: 20120410

REACTIONS (1)
  - Deep vein thrombosis [Recovering/Resolving]
